FAERS Safety Report 8449915-8 (Version None)
Quarter: 2012Q2

REPORT INFORMATION
  Report Type: 
  Country: None (occurrence: None)
  Receive Date: 20120614
  Receipt Date: 20120614
  Transmission Date: 20120825
  Serious: No
  Sender: FDA-Public Use
  Company Number: None

PATIENT
  Age: 5 Year
  Sex: Male

DRUGS (2)
  1. RISPERIDONE [Suspect]
     Indication: AUTISM
     Dosage: .375MG, TWICE A DAY, PO
     Route: 048
  2. RISPERIDONE [Suspect]
     Indication: ATTENTION DEFICIT/HYPERACTIVITY DISORDER
     Dosage: .375MG, TWICE A DAY, PO
     Route: 048

REACTIONS (4)
  - SCREAMING [None]
  - TREMOR [None]
  - DROOLING [None]
  - PRODUCT SUBSTITUTION ISSUE [None]
